FAERS Safety Report 19288306 (Version 3)
Quarter: 2022Q2

REPORT INFORMATION
  Report Type: Report from Study
  Country: CA (occurrence: CA)
  Receive Date: 20210522
  Receipt Date: 20220502
  Transmission Date: 20220721
  Serious: Yes (Other)
  Sender: FDA-Public Use
  Company Number: CA-TAKEDA-2019TUS055438

PATIENT
  Age: 71 Year
  Sex: Male

DRUGS (8)
  1. VEDOLIZUMAB [Suspect]
     Active Substance: VEDOLIZUMAB
     Indication: Crohn^s disease
     Dosage: 300 MILLIGRAM
     Route: 042
     Dates: start: 20190905
  2. VEDOLIZUMAB [Suspect]
     Active Substance: VEDOLIZUMAB
     Dosage: 300 MILLIGRAM
     Route: 042
  3. VEDOLIZUMAB [Suspect]
     Active Substance: VEDOLIZUMAB
     Dosage: 300 MILLIGRAM
     Route: 042
  4. VEDOLIZUMAB [Suspect]
     Active Substance: VEDOLIZUMAB
     Dosage: 300 MILLIGRAM
     Route: 042
  5. VEDOLIZUMAB [Suspect]
     Active Substance: VEDOLIZUMAB
     Dosage: 300 MILLIGRAM, Q4WEEKS
     Route: 042
     Dates: start: 20210526
  6. DOCUSATE [Suspect]
     Active Substance: DOCUSATE
     Indication: Abnormal faeces
     Dosage: UNK
     Route: 065
     Dates: start: 20191105
  7. PREDNISONE [Concomitant]
     Active Substance: PREDNISONE
     Dosage: UNK
  8. VITAMIN B12 [Concomitant]
     Active Substance: CYANOCOBALAMIN
     Dosage: UNK

REACTIONS (13)
  - Crohn^s disease [Unknown]
  - Abdominal discomfort [Not Recovered/Not Resolved]
  - Proctalgia [Unknown]
  - Faeces hard [Unknown]
  - Abdominal pain [Unknown]
  - Abnormal faeces [Unknown]
  - Diarrhoea [Not Recovered/Not Resolved]
  - Rash macular [Recovered/Resolved]
  - Flatulence [Unknown]
  - Constipation [Unknown]
  - Erythema [Recovering/Resolving]
  - Fatigue [Unknown]
  - Off label use [Unknown]

NARRATIVE: CASE EVENT DATE: 20191126
